FAERS Safety Report 17155373 (Version 1)
Quarter: 2019Q4

REPORT INFORMATION
  Report Type: Spontaneous
  Country: US (occurrence: US)
  Receive Date: 20191215
  Receipt Date: 20191215
  Transmission Date: 20200122
  Serious: No
  Sender: FDA-Public Use
  Company Number: US-B.I. PHARMACEUTICALS,INC./RIDGEFIELD-2019-BI-118929

PATIENT
  Age: 75 Year
  Sex: Female
  Weight: 97.06 kg

DRUGS (1)
  1. PRAXBIND [Suspect]
     Active Substance: IDARUCIZUMAB
     Indication: PROCOAGULANT THERAPY
     Dosage: DOSE: 5G(2X2.5G)?DAY 1 AT 10:39
     Route: 042

REACTIONS (1)
  - Pneumonia [Recovered/Resolved]
